FAERS Safety Report 19584426 (Version 1)
Quarter: 2021Q3

REPORT INFORMATION
  Report Type: Report from Study
  Country: None (occurrence: BR)
  Receive Date: 20210720
  Receipt Date: 20210720
  Transmission Date: 20211014
  Serious: Yes (Other)
  Sender: FDA-Public Use
  Company Number: BR-ABBVIE-21K-020-3992537-00

PATIENT
  Age: 77 Year
  Sex: Male
  Weight: 94 kg

DRUGS (5)
  1. SKYRIZI [Suspect]
     Active Substance: RISANKIZUMAB-RZAA
     Indication: PSORIASIS
     Dosage: LOADING DOSE ? WEEK 00
     Route: 058
  2. ALPRAZOLAM. [Suspect]
     Active Substance: ALPRAZOLAM
     Indication: ANXIETY
     Dosage: 1 TABLET AT THE MORNING AND NIGHT
     Route: 048
     Dates: start: 202106
  3. SKYRIZI [Suspect]
     Active Substance: RISANKIZUMAB-RZAA
     Dosage: LOADING DOSE ? WEEK 04
     Route: 058
  4. SKYRIZI [Suspect]
     Active Substance: RISANKIZUMAB-RZAA
     Route: 058
  5. ESCITALOPRAM [Suspect]
     Active Substance: ESCITALOPRAM OXALATE
     Indication: ANXIETY
     Dosage: 1 TABLET AT THE MORNING AND NIGHT
     Route: 048
     Dates: start: 202106

REACTIONS (4)
  - Cataract operation complication [Unknown]
  - Anxiety [Unknown]
  - Pruritus [Recovered/Resolved]
  - Cataract [Recovering/Resolving]

NARRATIVE: CASE EVENT DATE: 2021
